FAERS Safety Report 8970294 (Version 1)
Quarter: 2012Q4

REPORT INFORMATION
  Report Type: 
  Country: US (occurrence: US)
  Receive Date: 20121218
  Receipt Date: 20121218
  Transmission Date: 20130627
  Serious: No
  Sender: FDA-Public Use
  Company Number: US-BRISTOL-MYERS SQUIBB COMPANY-17037763

PATIENT
  Age: 1 None

DRUGS (3)
  1. ABILIFY [Suspect]
     Indication: AFFECTIVE DISORDER
     Dosage: 5-20mg
     Route: 048
  2. ABILIFY [Suspect]
     Indication: AGGRESSION
     Dosage: 5-20mg
     Route: 048
  3. ABILIFY [Suspect]
     Indication: AUTISM
     Dosage: 5-20mg
     Route: 048

REACTIONS (1)
  - Weight increased [Unknown]
